FAERS Safety Report 5985008-7 (Version None)
Quarter: 2008Q4

REPORT INFORMATION
  Report Type: 
  Country: None (occurrence: None)
  Receive Date: 20081208
  Receipt Date: 20080715
  Transmission Date: 20090506
  Serious: Yes (Hospitalization)
  Sender: FDA-Public Use
  Company Number: US-AMGEN-QUU290150

PATIENT
  Sex: Male
  Weight: 104 kg

DRUGS (11)
  1. ENBREL [Suspect]
     Indication: RHEUMATOID ARTHRITIS
     Route: 058
     Dates: start: 20040407
  2. ALLEGRA [Concomitant]
     Dates: start: 20020409
  3. ATENOLOL [Concomitant]
     Dates: start: 20020409
  4. NEURONTIN [Concomitant]
     Dates: start: 20060906
  5. PRILOSEC [Concomitant]
     Dates: start: 20020409
  6. TRICOR [Concomitant]
     Dates: start: 20020409
  7. VICODIN [Concomitant]
     Dates: start: 20020409
  8. QUININE [Concomitant]
  9. ASPIRIN [Concomitant]
  10. ADVAIR HFA [Concomitant]
  11. IBUPROFEN TABLETS [Concomitant]

REACTIONS (31)
  - ARTHRALGIA [None]
  - ASTHENIA [None]
  - BACK PAIN [None]
  - CHRONIC OBSTRUCTIVE PULMONARY DISEASE [None]
  - COLONIC POLYP [None]
  - CROHN'S DISEASE [None]
  - DRY THROAT [None]
  - DUPUYTREN'S CONTRACTURE [None]
  - DYSPNOEA [None]
  - FATIGUE [None]
  - FLANK PAIN [None]
  - FOOD INTOLERANCE [None]
  - GAIT DISTURBANCE [None]
  - HYPOACUSIS [None]
  - HYPOAESTHESIA [None]
  - INTERVERTEBRAL DISC PROTRUSION [None]
  - MUSCULOSKELETAL STIFFNESS [None]
  - NASAL SEPTUM DEVIATION [None]
  - NECK PAIN [None]
  - OEDEMA PERIPHERAL [None]
  - ORCHITIS [None]
  - PAIN [None]
  - PARAESTHESIA [None]
  - POOR QUALITY SLEEP [None]
  - PSORIASIS [None]
  - REFLUX OESOPHAGITIS [None]
  - RENAL CELL CARCINOMA [None]
  - SINUS DISORDER [None]
  - SINUSITIS [None]
  - SPINAL OSTEOARTHRITIS [None]
  - VENTRICULAR HYPOKINESIA [None]
